FAERS Safety Report 7815224-0 (Version None)
Quarter: 2011Q4

REPORT INFORMATION
  Report Type: 
  Country: None (occurrence: None)
  Receive Date: 20111014
  Receipt Date: 20111003
  Transmission Date: 20120403
  Serious: Yes (Hospitalization)
  Sender: FDA-Public Use
  Company Number: US-CELGENEUS-163-21880-11100437

PATIENT
  Sex: Male

DRUGS (6)
  1. LISINOPRIL [Concomitant]
     Indication: LUPUS NEPHRITIS
     Dosage: 40 MILLIGRAM
     Route: 048
  2. REVLIMID [Suspect]
     Indication: SKIN HYPERTROPHY
     Dosage: 5 MILLIGRAM
     Route: 048
     Dates: start: 20101011
  3. HYDROXYCHLOROQUINE SULFATE [Concomitant]
     Dosage: 400 MILLIGRAM
     Route: 048
  4. ZOLOFT [Concomitant]
     Indication: DEPRESSION
     Dosage: 200 MILLIGRAM
     Route: 048
  5. PREDNISONE [Concomitant]
     Dosage: 2.5 MILLIGRAM
     Route: 048
  6. IMURAN [Concomitant]
     Indication: LUPUS NEPHRITIS
     Dosage: 100 MILLIGRAM
     Route: 048

REACTIONS (2)
  - SYSTEMIC LUPUS ERYTHEMATOSUS [None]
  - MAJOR DEPRESSION [None]
